FAERS Safety Report 5287404-2 (Version None)
Quarter: 2007Q1

REPORT INFORMATION
  Report Type: 
  Country: None (occurrence: None)
  Receive Date: 20070116
  Receipt Date: 20060929
  Transmission Date: 20070707
  Serious: No
  Sender: FDA-Public Use
  Company Number: 2006SP003469

PATIENT
  Age: 65 Year
  Sex: Female
  Weight: 68.0396 kg

DRUGS (11)
  1. LUNESTA [Suspect]
     Indication: INSOMNIA
     Dosage: 3 MG; HS; ORAL
     Route: 048
     Dates: start: 20060928
  2. GLUCOPHAGE [Concomitant]
  3. GLYSET [Concomitant]
  4. GLYNASE [Concomitant]
  5. ALTACE [Concomitant]
  6. AMLODIPINE BESYLATE [Concomitant]
  7. TICLID [Concomitant]
  8. AVANDIA [Concomitant]
  9. ATORVASTATIN CALCIUM [Concomitant]
  10. INDAPAMIDE [Concomitant]
  11. EVISTA [Concomitant]

REACTIONS (2)
  - DRUG INEFFECTIVE [None]
  - MIDDLE INSOMNIA [None]
